FAERS Safety Report 23104616 (Version 1)
Quarter: 2023Q4

REPORT INFORMATION
  Report Type: Spontaneous
  Country: FR (occurrence: FR)
  Receive Date: 20231025
  Receipt Date: 20231025
  Transmission Date: 20240110
  Serious: Yes (Hospitalization)
  Sender: FDA-Public Use
  Company Number: None

PATIENT
  Age: 80 Year
  Sex: Male
  Weight: 77 kg

DRUGS (14)
  1. ATEZOLIZUMAB [Suspect]
     Active Substance: ATEZOLIZUMAB
     Indication: Small cell lung cancer metastatic
     Dosage: 4 CURES,1200 MG, SOLUTION ? DILUER POUR PERFUSION
     Route: 042
     Dates: start: 20190710, end: 20191003
  2. CARBOPLATIN [Suspect]
     Active Substance: CARBOPLATIN
     Indication: Small cell lung cancer metastatic
     Route: 042
     Dates: start: 20190710, end: 20191003
  3. ETOPOSIDE [Suspect]
     Active Substance: ETOPOSIDE
     Indication: Small cell lung cancer metastatic
     Dosage: 4 CURES
     Route: 042
     Dates: start: 20190710, end: 20191003
  4. XGEVA [Suspect]
     Active Substance: DENOSUMAB
     Indication: Oncologic complication
     Dosage: 120.000MG
     Route: 058
     Dates: start: 201907
  5. ERYTHROPOIETIN [Concomitant]
     Active Substance: ERYTHROPOIETIN
     Indication: Product used for unknown indication
     Route: 065
  6. URAPIDIL [Concomitant]
     Active Substance: URAPIDIL
     Indication: Product used for unknown indication
     Route: 065
  7. INNOHEP [Concomitant]
     Active Substance: TINZAPARIN SODIUM
     Indication: Product used for unknown indication
     Route: 065
  8. IPRATROPIUM [Concomitant]
     Active Substance: IPRATROPIUM
     Indication: Product used for unknown indication
     Route: 065
  9. KARDEGIC [Concomitant]
     Active Substance: ASPIRIN DL-LYSINE
     Indication: Product used for unknown indication
     Route: 065
  10. METFORMIN HYDROCHLORIDE [Concomitant]
     Active Substance: METFORMIN HYDROCHLORIDE
     Indication: Product used for unknown indication
     Route: 065
  11. PANTOPRAZOLE [Concomitant]
     Active Substance: PANTOPRAZOLE
     Indication: Product used for unknown indication
     Route: 065
  12. PERINDOPRIL [Concomitant]
     Active Substance: PERINDOPRIL
     Indication: Product used for unknown indication
     Route: 065
  13. TAHOR [Concomitant]
     Active Substance: ATORVASTATIN CALCIUM
     Indication: Product used for unknown indication
     Route: 065
  14. VERAPAMIL [Concomitant]
     Active Substance: VERAPAMIL HYDROCHLORIDE
     Indication: Product used for unknown indication
     Route: 065

REACTIONS (1)
  - Hypocalcaemia [Recovering/Resolving]

NARRATIVE: CASE EVENT DATE: 20191001
